FAERS Safety Report 4751252-X (Version None)
Quarter: 2005Q3

REPORT INFORMATION
  Report Type: 
  Country: None (occurrence: None)
  Receive Date: 20050823
  Receipt Date: 20050823
  Transmission Date: 20060218
  Serious: Yes (Hospitalization)
  Sender: FDA-Public Use
  Company Number: None

PATIENT
  Age: 2 Year
  Sex: Female
  Weight: 10.8863 kg

DRUGS (3)
  1. AMOXICILLIN [Suspect]
     Indication: EAR INFECTION
     Dosage: 1 TSP     2X A DAY  PO
     Route: 048
     Dates: start: 20050808, end: 20050815
  2. BENADRYL [Concomitant]
  3. TYLENOL [Concomitant]

REACTIONS (5)
  - CONTUSION [None]
  - ERYTHEMA MULTIFORME [None]
  - PYREXIA [None]
  - SWELLING [None]
  - URTICARIA [None]
